FAERS Safety Report 22305747 (Version 1)
Quarter: 2023Q2

REPORT INFORMATION
  Report Type: Report from Study
  Country: US (occurrence: US)
  Receive Date: 20230510
  Receipt Date: 20230510
  Transmission Date: 20230721
  Serious: Yes (Hospitalization, Other)
  Sender: FDA-Public Use
  Company Number: US-TAKEDA-US201800346

PATIENT
  Age: 57 Year
  Sex: Male

DRUGS (1)
  1. HUMAN IMMUNOGLOBULIN G\HYALURONIDASE RECOMBINANT HUMAN [Suspect]
     Active Substance: HUMAN IMMUNOGLOBULIN G\HYALURONIDASE RECOMBINANT HUMAN
     Indication: Primary immunodeficiency syndrome
     Dosage: UNK
     Route: 065

REACTIONS (8)
  - COVID-19 [Not Recovered/Not Resolved]
  - Pneumonia [Unknown]
  - Renal aneurysm [Unknown]
  - Aortic aneurysm [Unknown]
  - Pancreatic cyst [Unknown]
  - Hepatic cyst [Unknown]
  - Nasopharyngitis [Unknown]
  - Immunoglobulins decreased [Unknown]

NARRATIVE: CASE EVENT DATE: 20180105
